FAERS Safety Report 4713530-X (Version None)
Quarter: 2005Q3

REPORT INFORMATION
  Report Type: 
  Country: None (occurrence: None)
  Receive Date: 20050711
  Receipt Date: 20050628
  Transmission Date: 20060218
  Serious: Yes (Life-Threatening, Hospitalization)
  Sender: FDA-Public Use
  Company Number: 2004081020

PATIENT
  Age: 49 Year
  Sex: Male

DRUGS (9)
  1. LIPITOR [Suspect]
     Indication: HYPERLIPIDAEMIA
     Dosage: 10 MG (10 MG, 1 IN 1 D), ORAL
     Route: 048
     Dates: start: 20040927, end: 20041013
  2. TICLOPIDINE HCL [Suspect]
     Indication: ANGINA PECTORIS
     Dosage: 200 MG (1 IN 1 D), ORAL
     Route: 048
     Dates: start: 20040807, end: 20041014
  3. RANITIDINE HYDROCHLORIDE [Suspect]
     Indication: GASTRIC ULCER
     Dosage: 300 MG (1 IN 1 D), ORAL
     Route: 048
     Dates: start: 20040821, end: 20041014
  4. ISOSORBIDE MONONITRATE [Concomitant]
  5. INSULIN ASPART (INSULIN ASPART) [Concomitant]
  6. ASPIRIN [Concomitant]
  7. MAGNESIUM OXIDE (MAGNESIUM OXIDE) [Concomitant]
  8. ALL OTHER THERAPEUTIC PRODUCTS (ALL OTHER THERAPEUTIC PRODUCTS) [Concomitant]
  9. SENNA LEAF (SENNA LEAF) [Concomitant]

REACTIONS (15)
  - BLOOD ALKALINE PHOSPHATASE INCREASED [None]
  - BLOOD GLUCOSE INCREASED [None]
  - BLOOD LACTATE DEHYDROGENASE INCREASED [None]
  - HAEMORRHAGIC DIATHESIS [None]
  - IDIOPATHIC THROMBOCYTOPENIC PURPURA [None]
  - LYMPHOCYTE PERCENTAGE DECREASED [None]
  - MOUTH HAEMORRHAGE [None]
  - NEUTROPHIL PERCENTAGE INCREASED [None]
  - PETECHIAE [None]
  - PLATELET COUNT DECREASED [None]
  - PROTEIN URINE PRESENT [None]
  - PURPURA [None]
  - RED BLOOD CELL COUNT DECREASED [None]
  - UROBILIN URINE PRESENT [None]
  - WHITE BLOOD CELL COUNT INCREASED [None]
